FAERS Safety Report 23330650 (Version 1)
Quarter: 2023Q4

REPORT INFORMATION
  Report Type: Spontaneous
  Country: US (occurrence: US)
  Receive Date: 20231222
  Receipt Date: 20231222
  Transmission Date: 20240109
  Serious: Yes (Other)
  Sender: FDA-Public Use
  Company Number: US-GLAXOSMITHKLINE-US2023175855

PATIENT

DRUGS (2)
  1. TRELEGY ELLIPTA [Suspect]
     Active Substance: FLUTICASONE FUROATE\UMECLIDINIUM BROMIDE\VILANTEROL TRIFENATATE
     Indication: Chronic obstructive pulmonary disease
     Dosage: 1 PUFF(S), QD, 100-62.5-25MCG
     Route: 055
     Dates: start: 2018
  2. IBRANCE [Concomitant]
     Active Substance: PALBOCICLIB
     Indication: Breast cancer metastatic
     Dosage: UNK UNK, QD, DOSAGE UNKNOWN. PATIENT TAKING ORALLY ONCE A DAY IN A 4-WEEK CYCLE
     Route: 048

REACTIONS (2)
  - Breast cancer metastatic [Unknown]
  - Memory impairment [Unknown]
